FAERS Safety Report 26049327 (Version 1)
Quarter: 2025Q4

REPORT INFORMATION
  Report Type: Spontaneous
  Country: US (occurrence: US)
  Receive Date: 20251115
  Receipt Date: 20251115
  Transmission Date: 20260118
  Serious: No
  Sender: MERCK SHARP & DOHME LLC
  Company Number: US-009507513-2346190

PATIENT
  Sex: Female

DRUGS (7)
  1. WINREVAIR [Suspect]
     Active Substance: SOTATERCEPT-CSRK
     Indication: Product used for unknown indication
     Dosage: STRENGTH AND DOSE UNKNOWN
     Dates: end: 20250820
  2. WINREVAIR [Suspect]
     Active Substance: SOTATERCEPT-CSRK
  3. WINREVAIR [Suspect]
     Active Substance: SOTATERCEPT-CSRK
  4. WINREVAIR [Suspect]
     Active Substance: SOTATERCEPT-CSRK
  5. SILDENAFIL [Concomitant]
     Active Substance: SILDENAFIL
  6. REMODULIN [Suspect]
     Active Substance: TREPROSTINIL
     Indication: Pulmonary arterial hypertension
     Dosage: CONCENTRATION 10.0 MG/ML; DELIVERED VIA CADD SOLIS PUMP; ?UNK, CONTINUING, IV DRIP
     Route: 041
     Dates: start: 202103
  7. REMODULIN [Suspect]
     Active Substance: TREPROSTINIL
     Indication: Pulmonary arterial hypertension
     Dosage: CONCENTRATION 10.0 MG/ML; DELIVERED VIA CADD SOLIS PUMP; ?0.119 UG/KG, CONTINUOUS VIA INTRAVENOUS...
     Route: 041

REACTIONS (2)
  - Respiration abnormal [Unknown]
  - Product dose omission issue [Unknown]

NARRATIVE: CASE EVENT DATE: 20250101
